FAERS Safety Report 14926711 (Version 1)
Quarter: 2018Q2

REPORT INFORMATION
  Report Type: Spontaneous
  Country: FR (occurrence: FR)
  Receive Date: 20180523
  Receipt Date: 20180523
  Transmission Date: 20180711
  Serious: Yes (Other)
  Sender: FDA-Public Use
  Company Number: FR-MERCK KGAA-2048271

PATIENT
  Age: 66 Year
  Sex: Male

DRUGS (1)
  1. NOVOTHYROX [Suspect]
     Active Substance: LEVOTHYROXINE SODIUM
     Indication: PRODUCT USED FOR UNKNOWN INDICATION
     Dates: start: 201705

REACTIONS (28)
  - Arthralgia [Recovered/Resolved]
  - Middle insomnia [Recovered/Resolved]
  - Dry mouth [Recovered/Resolved]
  - Dry throat [Recovered/Resolved]
  - Pain [Recovered/Resolved]
  - Blood cholesterol increased [None]
  - Tension [Recovered/Resolved]
  - Thirst [Recovered/Resolved]
  - Apathy [Recovered/Resolved]
  - Heart rate increased [Recovered/Resolved]
  - Pain in extremity [Recovered/Resolved]
  - Musculoskeletal stiffness [Recovered/Resolved]
  - Fall [Recovered/Resolved]
  - Depression [Recovered/Resolved]
  - Irritability [Recovered/Resolved]
  - Rib fracture [Recovered/Resolved]
  - Dizziness [Recovered/Resolved]
  - Grip strength decreased [Recovered/Resolved]
  - Blood triglycerides increased [None]
  - Muscle spasms [None]
  - Fatigue [Recovered/Resolved]
  - Loss of libido [Recovered/Resolved]
  - Illness anxiety disorder [Recovered/Resolved]
  - Prostatic specific antigen increased [None]
  - Hypokinesia [Recovered/Resolved]
  - Anti-thyroid antibody [Recovered/Resolved]
  - Lipase increased [None]
  - Abulia [Recovered/Resolved]

NARRATIVE: CASE EVENT DATE: 2017
